FAERS Safety Report 17667078 (Version 1)
Quarter: 2020Q2

REPORT INFORMATION
  Report Type: Spontaneous
  Country: US (occurrence: US)
  Receive Date: 20200414
  Receipt Date: 20200414
  Transmission Date: 20200713
  Serious: Yes (Other)
  Sender: FDA-Public Use
  Company Number: US-MYLANLABS-2020M1036895

PATIENT
  Sex: Female
  Weight: 82 kg

DRUGS (1)
  1. EPIPEN [Suspect]
     Active Substance: EPINEPHRINE
     Indication: MAST CELL ACTIVATION SYNDROME
     Dosage: 1 DOSAGE FORM, PRN (AS NEEDED)
     Route: 030

REACTIONS (1)
  - Drug ineffective for unapproved indication [Recovered/Resolved]
